FAERS Safety Report 4867546-3 (Version None)
Quarter: 2005Q4

REPORT INFORMATION
  Report Type: 
  Country: None (occurrence: None)
  Receive Date: 20051222
  Receipt Date: 20051215
  Transmission Date: 20060501
  Serious: Yes (Other)
  Sender: FDA-Public Use
  Company Number: 2005169163

PATIENT
  Age: 39 Year
  Sex: Female
  Weight: 65.7716 kg

DRUGS (1)
  1. ROLAIDS EXTRA STRENGTH (MAGNESIUM HYDROXIDE, CALCIUM CARBONATE) [Suspect]
     Indication: DYSPEPSIA
     Dosage: 1 TABLET ONCE, ORAL
     Route: 048
     Dates: start: 20051201, end: 20051201

REACTIONS (7)
  - EYE SWELLING [None]
  - NASAL OEDEMA [None]
  - OEDEMA PERIPHERAL [None]
  - PARAESTHESIA [None]
  - PHARYNGEAL OEDEMA [None]
  - SWELLING FACE [None]
  - THROAT IRRITATION [None]
